FAERS Safety Report 8901360 (Version 2)
Quarter: 2013Q2

REPORT INFORMATION
  Report Type: Spontaneous
  Country: FR (occurrence: FR)
  Receive Date: 20121109
  Receipt Date: 20130610
  Transmission Date: 20140414
  Serious: Yes (Hospitalization)
  Sender: FDA-Public Use
  Company Number: FR-B.I. PHARMACEUTICALS,INC./RIDGEFIELD-2012-FF-01569FF

PATIENT
  Age: 77 Year
  Sex: Female

DRUGS (1)
  1. PRADAXA [Suspect]
     Indication: ARRHYTHMIA SUPRAVENTRICULAR
     Dosage: 220 MG
     Route: 048
     Dates: start: 201205, end: 20121019

REACTIONS (1)
  - Pulmonary embolism [Recovered/Resolved]
